FAERS Safety Report 5149560-6 (Version None)
Quarter: 2006Q4

REPORT INFORMATION
  Report Type: 
  Country: None (occurrence: None)
  Receive Date: 20061113
  Receipt Date: 20060503
  Transmission Date: 20070319
  Serious: No
  Sender: FDA-Public Use
  Company Number: US-GLAXOSMITHKLINE-A0604126A

PATIENT
  Sex: Male

DRUGS (5)
  1. COREG [Suspect]
     Route: 048
  2. ACCUPRIL [Concomitant]
  3. VYTORIN [Concomitant]
  4. WARFARIN SODIUM [Concomitant]
  5. ASPIRIN [Concomitant]

REACTIONS (3)
  - ADVERSE DRUG REACTION [None]
  - PRURITUS [None]
  - RASH [None]
